FAERS Safety Report 24102577 (Version 2)
Quarter: 2025Q2

REPORT INFORMATION
  Report Type: Spontaneous
  Country: CN (occurrence: CN)
  Receive Date: 20240717
  Receipt Date: 20250608
  Transmission Date: 20250717
  Serious: Yes (Hospitalization)
  Sender: COHERUS
  Company Number: CN-SHANGHAI JUNSHI BIOSCIENCES CO., LTD.-CN2024010547

PATIENT

DRUGS (3)
  1. TORIPALIMAB [Suspect]
     Active Substance: TORIPALIMAB
     Indication: Nasopharyngeal cancer
     Route: 041
     Dates: start: 20240604, end: 20240604
  2. GIMERACIL\OTERACIL\TEGAFUR [Suspect]
     Active Substance: GIMERACIL\OTERACIL POTASSIUM\TEGAFUR
     Indication: Nasopharyngeal cancer
     Route: 048
     Dates: start: 20240604, end: 20240617
  3. RIVOCERANIB MESYLATE [Suspect]
     Active Substance: RIVOCERANIB MESYLATE
     Indication: Nasopharyngeal cancer
     Dosage: 0.25 G, QD
     Route: 048
     Dates: start: 20240604, end: 20240624

REACTIONS (1)
  - Myelosuppression [Unknown]

NARRATIVE: CASE EVENT DATE: 20240625
